FAERS Safety Report 15201247 (Version 1)
Quarter: 2018Q3

REPORT INFORMATION
  Report Type: Spontaneous
  Country: DE (occurrence: DE)
  Receive Date: 20180726
  Receipt Date: 20180726
  Transmission Date: 20181010
  Serious: Yes (Other)
  Sender: FDA-Public Use
  Company Number: DE-SUN PHARMACEUTICAL INDUSTRIES LTD-2018RR-179579

PATIENT
  Age: 77 Year
  Sex: Male
  Weight: 82 kg

DRUGS (3)
  1. RAMIPRIL. [Concomitant]
     Active Substance: RAMIPRIL
     Indication: ESSENTIAL HYPERTENSION
     Dosage: ANWENDUNG ?BER MEHRERE JAHRE
     Route: 065
  2. FELODIPIN [Concomitant]
     Active Substance: FELODIPINE
     Indication: ESSENTIAL HYPERTENSION
     Dosage: ANWENDUNG UBER MEHRERE JAHRE
     Route: 065
  3. TAMSULOSIN BASICS 0,4 MG HARTKAPSEL, RETARDIERT [Suspect]
     Active Substance: TAMSULOSIN
     Indication: BENIGN PROSTATIC HYPERPLASIA
     Dosage: 1 HARTKAPSEL = 0,4 MG TAMSULOSIN TAGLICH MITTAGS
     Route: 048
     Dates: start: 20180313, end: 20180508

REACTIONS (2)
  - Arrhythmia [Recovered/Resolved]
  - Extrasystoles [Recovered/Resolved]
